FAERS Safety Report 8847940 (Version 2)
Quarter: 2013Q2

REPORT INFORMATION
  Report Type: Report from Study
  Country: US (occurrence: US)
  Receive Date: 20121018
  Receipt Date: 20130527
  Transmission Date: 20140414
  Serious: Yes (Hospitalization)
  Sender: FDA-Public Use
  Company Number: US-ROCHE-1146397

PATIENT
  Sex: 0

DRUGS (6)
  1. PEG-INTERFERON ALFA 2A [Suspect]
     Indication: HEPATITIS C
     Route: 065
  2. PEG-INTERFERON ALFA 2A [Suspect]
     Indication: HEPATIC CIRRHOSIS
  3. RIBAVIRIN [Suspect]
     Indication: HEPATITIS C
     Route: 065
  4. RIBAVIRIN [Suspect]
     Indication: HEPATIC CIRRHOSIS
  5. TELAPREVIR [Suspect]
     Indication: HEPATITIS C
     Route: 065
  6. TELAPREVIR [Suspect]
     Indication: HEPATIC CIRRHOSIS

REACTIONS (2)
  - Intervertebral discitis [Unknown]
  - Abscess [Unknown]
